FAERS Safety Report 8559050-6 (Version None)
Quarter: 2012Q3

REPORT INFORMATION
  Report Type: 
  Country: None (occurrence: None)
  Receive Date: 20120802
  Receipt Date: 20120724
  Transmission Date: 20120928
  Serious: No
  Sender: FDA-Public Use
  Company Number: US-BIOGENIDEC-2012BI027398

PATIENT
  Age: 46 Year
  Sex: Male

DRUGS (3)
  1. TYSABRI [Suspect]
     Route: 042
     Dates: start: 20090805, end: 20090921
  2. TYSABRI [Suspect]
     Route: 042
     Dates: start: 20100924, end: 20120514
  3. TYSABRI [Suspect]
     Indication: MULTIPLE SCLEROSIS
     Route: 042
     Dates: start: 20060929, end: 20081003

REACTIONS (2)
  - GENERAL PHYSICAL HEALTH DETERIORATION [None]
  - EMOTIONAL DISORDER [None]
